FAERS Safety Report 5974814-0 (Version None)
Quarter: 2008Q4

REPORT INFORMATION
  Report Type: 
  Country: None (occurrence: None)
  Receive Date: 20081201
  Receipt Date: 20081126
  Transmission Date: 20090506
  Serious: Yes (Hospitalization)
  Sender: FDA-Public Use
  Company Number: ZA-PFIZER INC-2008100593

PATIENT
  Age: 82 Year
  Sex: Male

DRUGS (3)
  1. GEODON (IM) [Suspect]
     Indication: RESTLESSNESS
     Route: 030
     Dates: start: 20081125
  2. GEODON (IM) [Suspect]
     Indication: AGGRESSION
  3. SERENACE INJECTION [Concomitant]
     Dates: start: 20081125, end: 20081125

REACTIONS (2)
  - HYPERVENTILATION [None]
  - RESPIRATORY DISTRESS [None]
